FAERS Safety Report 20813424 (Version 1)
Quarter: 2022Q2

REPORT INFORMATION
  Report Type: Spontaneous
  Country: SI (occurrence: SI)
  Receive Date: 20220511
  Receipt Date: 20220511
  Transmission Date: 20220721
  Serious: Yes (Life-Threatening)
  Sender: FDA-Public Use
  Company Number: None

PATIENT
  Age: 55 Year
  Sex: Male

DRUGS (9)
  1. QUETIAPINE FUMARATE [Suspect]
     Active Substance: QUETIAPINE FUMARATE
     Indication: Suicide attempt
     Dosage: 400MG; 50 TABLETS,LOQUEN SR 400 MG
  2. ZOLPIDEM TARTRATE [Suspect]
     Active Substance: ZOLPIDEM TARTRATE
     Indication: Suicide attempt
     Dosage: 10MG; 10 TABLETS,SANVAL 10 MG
  3. PERINDOPRIL [Concomitant]
     Active Substance: PERINDOPRIL
     Dosage: PRENESSA 8 MG,UNIT DOSE 8 MG
  4. WELLBUTRIN SR [Concomitant]
     Active Substance: BUPROPION HYDROCHLORIDE
     Dosage: UNIT DOSE 300MG
  5. ASPIRIN [Concomitant]
     Active Substance: ASPIRIN
     Dosage: ASPIRIN PROTECT 100MG,UNIT DOSE 100MG
  6. VENLAFAXINE HYDROCHLORIDE [Concomitant]
     Active Substance: VENLAFAXINE HYDROCHLORIDE
     Dosage: ALVENTA 150 MG,UNIT DOSE 150MG
  7. BISOPROLOL FUMARATE [Concomitant]
     Active Substance: BISOPROLOL FUMARATE
     Dosage: CONCOR 5 MG,UNIT DOSE 5MG
  8. Nillar [Concomitant]
     Dosage: NILLAR 40 MG,UNIT DOSE 40MG
  9. BROMAZEPAM [Concomitant]
     Active Substance: BROMAZEPAM
     Dosage: LEXAURIN 3 MG,UNIT DOSE 3MG

REACTIONS (2)
  - Suicide attempt [Recovering/Resolving]
  - Hypothermia [Recovering/Resolving]

NARRATIVE: CASE EVENT DATE: 20210408
